FAERS Safety Report 21121398 (Version 1)
Quarter: 2022Q3

REPORT INFORMATION
  Report Type: Spontaneous
  Country: CN (occurrence: CN)
  Receive Date: 20220722
  Receipt Date: 20220722
  Transmission Date: 20221026
  Serious: Yes (Other)
  Sender: FDA-Public Use
  Company Number: CN-009507513-2207CHN006758

PATIENT
  Age: 63 Year
  Sex: Male
  Weight: 71 kg

DRUGS (3)
  1. KEYTRUDA [Suspect]
     Active Substance: PEMBROLIZUMAB
     Indication: Lung carcinoma cell type unspecified stage III
     Dosage: 200 MG ONCE
     Route: 041
     Dates: start: 20220627, end: 20220627
  2. PACLITAXEL [Suspect]
     Active Substance: PACLITAXEL
     Indication: Lung carcinoma cell type unspecified stage III
     Dosage: 480 MG ONCE
     Route: 041
     Dates: start: 20220627, end: 20220627
  3. CARBOPLATIN [Suspect]
     Active Substance: CARBOPLATIN
     Indication: Lung carcinoma cell type unspecified stage III
     Dosage: 500 MILLIGRAM, UNK
     Dates: start: 20220627, end: 20220627

REACTIONS (6)
  - Neurotoxicity [Recovering/Resolving]
  - Rash [Recovering/Resolving]
  - Skin toxicity [Recovering/Resolving]
  - Drug hypersensitivity [Recovering/Resolving]
  - Joint swelling [Recovering/Resolving]
  - Peripheral swelling [Recovering/Resolving]

NARRATIVE: CASE EVENT DATE: 20220707
